FAERS Safety Report 5115291-1 (Version None)
Quarter: 2006Q3

REPORT INFORMATION
  Report Type: 
  Country: None (occurrence: None)
  Receive Date: 20060926
  Receipt Date: 20060810
  Transmission Date: 20061208
  Serious: Yes (Hospitalization)
  Sender: FDA-Public Use
  Company Number: DE-GLAXOSMITHKLINE-D0050589A

PATIENT
  Age: 63 Year
  Sex: Female

DRUGS (7)
  1. LAMICTAL [Suspect]
     Dosage: 25MG PER DAY
     Route: 048
     Dates: start: 20060601
  2. VALPROATE SODIUM [Suspect]
     Route: 048
  3. AVELOX [Concomitant]
     Route: 065
  4. VIANI [Concomitant]
     Route: 055
  5. BEROTEC [Concomitant]
     Route: 055
  6. VENLAFAXINE HCL [Concomitant]
     Dosage: 75MG UNKNOWN
     Route: 048
  7. PARACETAMOL [Concomitant]
     Route: 065
     Dates: start: 20060801

REACTIONS (11)
  - ANAEMIA [None]
  - GINGIVAL SWELLING [None]
  - HEADACHE [None]
  - HEPATIC ENZYME INCREASED [None]
  - HEPATITIS TOXIC [None]
  - IMMUNODEFICIENCY [None]
  - PYREXIA [None]
  - RASH [None]
  - SEPSIS [None]
  - STAPHYLOCOCCAL INFECTION [None]
  - UVEITIS [None]
